FAERS Safety Report 8093037-5 (Version None)
Quarter: 2012Q1

REPORT INFORMATION
  Report Type: 
  Country: None (occurrence: None)
  Receive Date: 20120128
  Receipt Date: 20111027
  Transmission Date: 20120608
  Serious: No
  Sender: FDA-Public Use
  Company Number: PR-ABBOTT-11P-131-0733987-00

PATIENT
  Sex: Female

DRUGS (6)
  1. HYDROCHLOROTHIAZIDE [Concomitant]
     Indication: HYPERTENSION
     Route: 048
  2. GEMFIBROZIL [Concomitant]
     Indication: GASTROINTESTINAL INFLAMMATION
     Route: 048
  3. HUMIRA [Suspect]
     Indication: PSORIASIS
     Route: 058
  4. ENALAPRIL [Concomitant]
     Indication: HYPERTENSION
     Route: 048
     Dates: start: 20101101
  5. DILTIAZEM HCL [Concomitant]
     Indication: HYPERTENSION
     Route: 048
  6. CALCIUM PLUS D [Concomitant]
     Indication: OSTEOPOROSIS

REACTIONS (7)
  - FEELING ABNORMAL [None]
  - PAIN [None]
  - MOOD ALTERED [None]
  - DIZZINESS [None]
  - GASTROENTERITIS ESCHERICHIA COLI [None]
  - INJECTION SITE PAIN [None]
  - INJECTION SITE INFLAMMATION [None]
